FAERS Safety Report 7898002-6 (Version None)
Quarter: 2011Q4

REPORT INFORMATION
  Report Type: 
  Country: None (occurrence: None)
  Receive Date: 20111107
  Receipt Date: 20111107
  Transmission Date: 20120403
  Serious: Yes (Hospitalization, Other)
  Sender: FDA-Public Use
  Company Number: None

PATIENT
  Age: 36 Year
  Sex: Female
  Weight: 142.88 kg

DRUGS (1)
  1. TOPAMAX [Suspect]
     Indication: MENTAL DISORDER
     Dosage: 2 X A DAY
     Route: 048
     Dates: start: 20110601, end: 20110801

REACTIONS (5)
  - INCOHERENT [None]
  - VISION BLURRED [None]
  - NAUSEA [None]
  - TEMPERATURE INTOLERANCE [None]
  - VOMITING [None]
